FAERS Safety Report 8582128-8 (Version None)
Quarter: 2012Q3

REPORT INFORMATION
  Report Type: 
  Country: None (occurrence: None)
  Receive Date: 20120809
  Receipt Date: 20120807
  Transmission Date: 20120928
  Serious: Yes (Other)
  Sender: FDA-Public Use
  Company Number: US-PFIZER INC-2012193391

PATIENT
  Age: 78 Year
  Sex: Male
  Weight: 87.528 kg

DRUGS (2)
  1. TIKOSYN [Suspect]
     Indication: ATRIAL FIBRILLATION
     Dosage: UNK
  2. MULTI-VITAMINS [Concomitant]
     Dosage: UNK

REACTIONS (2)
  - HIP ARTHROPLASTY [None]
  - ACCIDENT AT HOME [None]
